FAERS Safety Report 6511255 (Version 6)
Quarter: 2014Q3

REPORT INFORMATION
  Report Type: Report from Study
  Country: SE (occurrence: SE)
  Receive Date: 20071220
  Receipt Date: 20140929
  Transmission Date: 20150326
  Serious: Yes (Hospitalization)
  Sender: FDA-Public Use
  Company Number: SE-ELI_LILLY_AND_COMPANY-SE200712003919

PATIENT
  Age: 86 Year
  Sex: Female

DRUGS (3)
  1. KALCIPOS-D [Concomitant]
     Active Substance: CALCIUM CARBONATE\CHOLECALCIFEROL
     Indication: OSTEOPOROSIS
     Dosage: 1 D/F (500MG CA+400IU VIT D), 2/D
     Route: 065
     Dates: start: 20010715, end: 20071212
  2. MIACALCIC [Concomitant]
     Active Substance: CALCITONIN SALMON
     Indication: BLOOD CALCIUM INCREASED
     Dosage: 1 D/F, ONCE
     Route: 065
  3. TERIPARATIDE [Suspect]
     Active Substance: TERIPARATIDE
     Indication: OSTEOPOROSIS
     Dosage: 20 UG, DAILY (1/D)
     Route: 065
     Dates: start: 20070314, end: 20071212

REACTIONS (2)
  - Hypercalcaemia [Recovered/Resolved with Sequelae]
  - Skin ulcer [Recovering/Resolving]

NARRATIVE: CASE EVENT DATE: 20071128
